FAERS Safety Report 15657944 (Version 1)
Quarter: 2018Q4

REPORT INFORMATION
  Report Type: Spontaneous
  Country: GB (occurrence: GB)
  Receive Date: 20181126
  Receipt Date: 20181126
  Transmission Date: 20190205
  Serious: Yes (Other)
  Sender: FDA-Public Use
  Company Number: GB-TEVA-2018-GB-978531

PATIENT
  Age: 86 Year
  Sex: Male

DRUGS (5)
  1. SITAGLIPTIN [Concomitant]
     Active Substance: SITAGLIPTIN
  2. PIOGLITAZONE HYDROCHLORIDE. [Suspect]
     Active Substance: PIOGLITAZONE HYDROCHLORIDE
     Indication: DIABETES MELLITUS
     Dosage: 30 MILLIGRAM DAILY;
     Route: 048
  3. ACCORD-UK ATENOLOL [Concomitant]
  4. GLICLAZIDE [Concomitant]
     Active Substance: GLICLAZIDE
  5. ATORVASTATIN [Concomitant]
     Active Substance: ATORVASTATIN

REACTIONS (2)
  - Cardiac failure chronic [Not Recovered/Not Resolved]
  - Oedema peripheral [Unknown]
